FAERS Safety Report 4970409-6 (Version None)
Quarter: 2006Q2

REPORT INFORMATION
  Report Type: 
  Country: None (occurrence: None)
  Receive Date: 20060412
  Receipt Date: 20060403
  Transmission Date: 20061013
  Serious: Yes (Death, Other)
  Sender: FDA-Public Use
  Company Number: TR-GLAXOSMITHKLINE-B0419766A

PATIENT
  Age: 34 Year
  Sex: Female

DRUGS (2)
  1. PAROXETINE HCL [Suspect]
     Route: 065
  2. MOCLOBEMIDE [Suspect]
     Route: 065

REACTIONS (14)
  - AGITATION [None]
  - CARDIO-RESPIRATORY ARREST [None]
  - CHILLS [None]
  - HYPERGLYCAEMIA [None]
  - HYPERTHERMIA [None]
  - METABOLIC ACIDOSIS [None]
  - MUSCLE RIGIDITY [None]
  - MYOCLONUS [None]
  - OVERDOSE [None]
  - OXYGEN SATURATION DECREASED [None]
  - RESPIRATORY ACIDOSIS [None]
  - SEROTONIN SYNDROME [None]
  - SINUS TACHYCARDIA [None]
  - SOMNOLENCE [None]
